FAERS Safety Report 9143767 (Version 1)
Quarter: 2013Q1

REPORT INFORMATION
  Report Type: Spontaneous
  Country: DE (occurrence: DE)
  Receive Date: 20130306
  Receipt Date: 20130306
  Transmission Date: 20140127
  Serious: Yes (Other)
  Sender: FDA-Public Use
  Company Number: DE-ROCHE-1198321

PATIENT
  Sex: Female

DRUGS (7)
  1. PEGASYS [Suspect]
     Indication: HEPATITIS C
     Route: 065
  2. COPEGUS [Suspect]
     Indication: HEPATITIS C
     Route: 065
  3. TELAPREVIR [Suspect]
     Indication: HEPATITIS C
     Route: 065
  4. BOCEPREVIR [Suspect]
     Indication: HEPATITIS C
     Route: 065
  5. MTX [Concomitant]
     Indication: RHEUMATOID ARTHRITIS
  6. CORTISONE [Concomitant]
     Indication: RHEUMATOID ARTHRITIS
  7. AZATHIOPRIN [Concomitant]
     Indication: RHEUMATOID ARTHRITIS

REACTIONS (1)
  - Skin ulcer [Unknown]
